FAERS Safety Report 14055603 (Version 3)
Quarter: 2018Q1

REPORT INFORMATION
  Report Type: Spontaneous
  Country: DE (occurrence: DE)
  Receive Date: 20171006
  Receipt Date: 20180227
  Transmission Date: 20180508
  Serious: Yes (Disabling)
  Sender: FDA-Public Use
  Company Number: DE-SA-2017SA185397

PATIENT
  Sex: Male

DRUGS (1)
  1. AUBAGIO [Suspect]
     Active Substance: TERIFLUNOMIDE
     Indication: MULTIPLE SCLEROSIS
     Route: 048

REACTIONS (2)
  - Cerebral haemorrhage [Unknown]
  - Dysphagia [Unknown]
